FAERS Safety Report 9933636 (Version 2)
Quarter: 2014Q1

REPORT INFORMATION
  Report Type: Report from Study
  Country: US (occurrence: US)
  Receive Date: 20140228
  Receipt Date: 20140228
  Transmission Date: 20141002
  Serious: No
  Sender: FDA-Public Use
  Company Number: US-MYLANLABS-2013S1027416

PATIENT
  Age: 13 Year
  Sex: Male
  Weight: 78 kg

DRUGS (2)
  1. AMNESTEEM CAPSULES [Suspect]
     Indication: ACNE
     Route: 048
     Dates: start: 20130913, end: 20131204
  2. PROZAC [Concomitant]

REACTIONS (1)
  - Depression [Not Recovered/Not Resolved]
